FAERS Safety Report 6956452-6 (Version None)
Quarter: 2010Q3

REPORT INFORMATION
  Report Type: 
  Country: None (occurrence: None)
  Receive Date: 20100830
  Receipt Date: 20100730
  Transmission Date: 20110219
  Serious: No
  Sender: FDA-Public Use
  Company Number: US-BAYER-201029583NA

PATIENT
  Age: 35 Year
  Sex: Female

DRUGS (1)
  1. AVELOX [Suspect]
     Indication: POSTOPERATIVE CARE
     Dosage: AS USED: 400 MG  UNIT DOSE: 400 MG
     Route: 042
     Dates: start: 20100730

REACTIONS (1)
  - NO ADVERSE EVENT [None]
